FAERS Safety Report 6964658-5 (Version None)
Quarter: 2010Q3

REPORT INFORMATION
  Report Type: 
  Country: None (occurrence: None)
  Receive Date: 20100903
  Receipt Date: 20100826
  Transmission Date: 20110219
  Serious: Yes (Other)
  Sender: FDA-Public Use
  Company Number: US-ASTRAZENECA-2007UW25474

PATIENT
  Age: 49 Year
  Sex: Female
  Weight: 61.2 kg

DRUGS (12)
  1. SEROQUEL [Suspect]
     Indication: BIPOLAR DISORDER
     Dosage: 100MG - 300MG
     Route: 048
     Dates: start: 20030101
  2. SEROQUEL [Suspect]
     Indication: ANXIETY
     Dosage: 100MG - 300MG
     Route: 048
     Dates: start: 20030101
  3. SEROQUEL [Suspect]
     Indication: INSOMNIA
     Dosage: 100MG - 300MG
     Route: 048
     Dates: start: 20030101
  4. SEROQUEL [Suspect]
     Dosage: 25 MG DISPENSED
     Route: 048
     Dates: start: 20030317
  5. SEROQUEL [Suspect]
     Dosage: 25 MG DISPENSED
     Route: 048
     Dates: start: 20030317
  6. SEROQUEL [Suspect]
     Dosage: 25 MG DISPENSED
     Route: 048
     Dates: start: 20030317
  7. SEROQUEL [Suspect]
     Dosage: 100MG - 300MG
     Route: 048
     Dates: start: 20030505, end: 20070815
  8. SEROQUEL [Suspect]
     Dosage: 100MG - 300MG
     Route: 048
     Dates: start: 20030505, end: 20070815
  9. SEROQUEL [Suspect]
     Dosage: 100MG - 300MG
     Route: 048
     Dates: start: 20030505, end: 20070815
  10. ZOLOFT [Concomitant]
     Dosage: 100 MG DISPENSED
     Route: 048
     Dates: start: 20030110
  11. TRAZODONE HCL [Concomitant]
     Dosage: 100 MG DISPENSED
     Route: 048
     Dates: start: 20021212
  12. DEPAKOTE [Concomitant]
     Dosage: 500 MG DISPENSED
     Route: 048
     Dates: start: 20021212

REACTIONS (6)
  - BLOOD TRIGLYCERIDES INCREASED [None]
  - CATARACT [None]
  - DIABETIC COMPLICATION [None]
  - OBESITY [None]
  - TYPE 2 DIABETES MELLITUS [None]
  - WRIST FRACTURE [None]
